FAERS Safety Report 13861683 (Version 1)
Quarter: 2017Q3

REPORT INFORMATION
  Report Type: Spontaneous
  Country: AU (occurrence: AU)
  Receive Date: 20170811
  Receipt Date: 20170811
  Transmission Date: 20171127
  Serious: Yes (Death, Other)
  Sender: FDA-Public Use
  Company Number: AU-BAUSCH-BL-2017-023409

PATIENT
  Age: 17 Year
  Sex: Male

DRUGS (1)
  1. NUELIN SR TABLETS 250MG [Suspect]
     Active Substance: THEOPHYLLINE
     Indication: PRODUCT USED FOR UNKNOWN INDICATION
     Dosage: 100 TABLETS
     Route: 048

REACTIONS (3)
  - Hyperglycaemia [Unknown]
  - Overdose [Fatal]
  - Prescription drug used without a prescription [Unknown]
